FAERS Safety Report 17680921 (Version 1)
Quarter: 2020Q2

REPORT INFORMATION
  Report Type: Spontaneous
  Country: CH (occurrence: CH)
  Receive Date: 20200417
  Receipt Date: 20200417
  Transmission Date: 20200714
  Serious: Yes (Disabling, Other)
  Sender: FDA-Public Use
  Company Number: CH-ASTRAZENECA-2020SE52190

PATIENT
  Age: 26 Year
  Sex: Male

DRUGS (9)
  1. SEROQUEL [Suspect]
     Active Substance: QUETIAPINE FUMARATE
     Route: 048
  2. SEROQUEL [Suspect]
     Active Substance: QUETIAPINE FUMARATE
     Route: 048
  3. XEPLION [Suspect]
     Active Substance: PALIPERIDONE PALMITATE
     Dosage: 150.0MG UNKNOWN
     Route: 030
     Dates: start: 201909, end: 20191220
  4. ENTUMINE [Suspect]
     Active Substance: CLOTHIAPINE
     Dosage: 20.0MG AS REQUIRED
     Route: 048
  5. ENTUMINE [Suspect]
     Active Substance: CLOTHIAPINE
     Dosage: 20.0MG UNKNOWN
     Route: 048
  6. TEMESTA [Concomitant]
  7. SEROQUEL [Suspect]
     Active Substance: QUETIAPINE FUMARATE
     Dosage: AS NECESSARY
     Route: 048
  8. SEROQUEL [Suspect]
     Active Substance: QUETIAPINE FUMARATE
     Route: 048
  9. REMERON [Suspect]
     Active Substance: MIRTAZAPINE
     Dosage: 45.0MG UNKNOWN
     Route: 048

REACTIONS (2)
  - Erectile dysfunction [Recovered/Resolved]
  - Hyperprolactinaemia [Not Recovered/Not Resolved]
